FAERS Safety Report 12970492 (Version 1)
Quarter: 2016Q4

REPORT INFORMATION
  Report Type: Spontaneous
  Country: US (occurrence: US)
  Receive Date: 20161123
  Receipt Date: 20161123
  Transmission Date: 20170207
  Serious: Yes (Other)
  Sender: FDA-Public Use
  Company Number: US-JNJFOC-20161116253

PATIENT
  Sex: Male
  Weight: 79.38 kg

DRUGS (2)
  1. TYLENOL WITH CODEINE [Suspect]
     Active Substance: ACETAMINOPHEN\CODEINE PHOSPHATE
     Indication: PAIN
     Dosage: AS NEEDED
     Route: 048
     Dates: start: 2012
  2. DIAZEPAM. [Concomitant]
     Active Substance: DIAZEPAM
     Indication: HYPERSOMNIA
     Route: 065

REACTIONS (10)
  - Malaise [Unknown]
  - Tooth loss [Unknown]
  - Memory impairment [Not Recovered/Not Resolved]
  - Loss of consciousness [Unknown]
  - Product lot number issue [Unknown]
  - Cerebrovascular accident [Unknown]
  - Alcohol use [Unknown]
  - Fall [Unknown]
  - Arthralgia [Unknown]
  - Sensory disturbance [Unknown]

NARRATIVE: CASE EVENT DATE: 2014
